FAERS Safety Report 6444871-6 (Version None)
Quarter: 2009Q4

REPORT INFORMATION
  Report Type: 
  Country: None (occurrence: None)
  Receive Date: 20091110
  Receipt Date: 20090924
  Transmission Date: 20100525
  Serious: No
  Sender: FDA-Public Use
  Company Number: 1000009083

PATIENT
  Age: 60 Year
  Sex: Female

DRUGS (8)
  1. SAVELLA [Suspect]
     Indication: FIBROMYALGIA
     Dosage: 12.5 MG (12.5 MG, 1 IN  1D), ORAL; 25 MG (12.5 MG, 2 IN 1 D), O; 50 MG (25 MG, 2 IN 1 D), ORAL
     Route: 048
     Dates: start: 20090828, end: 20090828
  2. SAVELLA [Suspect]
     Indication: FIBROMYALGIA
     Dosage: 12.5 MG (12.5 MG, 1 IN  1D), ORAL; 25 MG (12.5 MG, 2 IN 1 D), O; 50 MG (25 MG, 2 IN 1 D), ORAL
     Route: 048
     Dates: start: 20090829, end: 20090830
  3. SAVELLA [Suspect]
     Indication: FIBROMYALGIA
     Dosage: 12.5 MG (12.5 MG, 1 IN  1D), ORAL; 25 MG (12.5 MG, 2 IN 1 D), O; 50 MG (25 MG, 2 IN 1 D), ORAL
     Route: 048
     Dates: start: 20090831, end: 20090903
  4. SAVELLA [Suspect]
     Indication: FIBROMYALGIA
     Dosage: 100 MG (50 MG, 2 IN 1 D), ORAL
     Route: 048
     Dates: start: 20090904, end: 20090914
  5. VALIUM [Concomitant]
  6. VOLTAREN [Concomitant]
  7. GABAPENTIN [Concomitant]
  8. SOMA [Concomitant]

REACTIONS (3)
  - DIARRHOEA [None]
  - ERUCTATION [None]
  - WEIGHT DECREASED [None]
